FAERS Safety Report 9204442 (Version 1)
Quarter: 2013Q1

REPORT INFORMATION
  Report Type: Spontaneous
  Country: US (occurrence: None)
  Receive Date: 20130329
  Receipt Date: 20130329
  Transmission Date: 20140127
  Serious: Yes (Other)
  Sender: FDA-Public Use
  Company Number: 001499614A

PATIENT
  Age: 36 Year
  Sex: Female

DRUGS (3)
  1. PROACTIV RENEWING CLEANSER [Suspect]
     Indication: ACNE
     Route: 062
     Dates: start: 20130308
  2. PROACTIVE REPAIRING TREATMENT [Suspect]
     Indication: ACNE
     Route: 062
     Dates: start: 20130308
  3. PROACTIV DARK SPOT CORRECTOR [Suspect]
     Indication: ACNE
     Route: 062
     Dates: start: 20130308

REACTIONS (5)
  - Burning sensation [None]
  - Swelling face [None]
  - Rash papular [None]
  - Rash pruritic [None]
  - Rash generalised [None]
